FAERS Safety Report 6201303-0 (Version None)
Quarter: 2009Q2

REPORT INFORMATION
  Report Type: 
  Country: None (occurrence: None)
  Receive Date: 20090526
  Receipt Date: 20090515
  Transmission Date: 20091009
  Serious: Yes (Other)
  Sender: FDA-Public Use
  Company Number: PHEH2009US04356

PATIENT
  Sex: Female

DRUGS (1)
  1. FORADIL [Suspect]
     Dosage: UNK
     Dates: start: 20081101

REACTIONS (3)
  - BRAIN OPERATION [None]
  - COUGH [None]
  - RASH GENERALISED [None]
